FAERS Safety Report 17098638 (Version 5)
Quarter: 2020Q2

REPORT INFORMATION
  Report Type: Spontaneous
  Country: US (occurrence: US)
  Receive Date: 20191202
  Receipt Date: 20200526
  Transmission Date: 20200713
  Serious: No
  Sender: FDA-Public Use
  Company Number: US-PFIZER INC-2019512417

PATIENT
  Age: 49 Year
  Sex: Female
  Weight: 127 kg

DRUGS (2)
  1. XELJANZ XR [Suspect]
     Active Substance: TOFACITINIB CITRATE
     Dosage: 11 MG, 1X/DAY
     Route: 048
     Dates: start: 20190401
  2. XELJANZ XR [Suspect]
     Active Substance: TOFACITINIB CITRATE
     Indication: RHEUMATOID ARTHRITIS
     Dosage: 11 MG, 1X/DAY
     Route: 048
     Dates: start: 2019, end: 201911

REACTIONS (13)
  - Product dose omission [Unknown]
  - C-reactive protein increased [Unknown]
  - Feeling abnormal [Unknown]
  - Depressed mood [Unknown]
  - Cough [Unknown]
  - Drug ineffective [Unknown]
  - Vaginal infection [Unknown]
  - Sinusitis [Unknown]
  - Alopecia [Unknown]
  - Malaise [Not Recovered/Not Resolved]
  - Hepatic enzyme increased [Unknown]
  - Dyspnoea [Unknown]
  - Jaw disorder [Recovered/Resolved]

NARRATIVE: CASE EVENT DATE: 201911
